FAERS Safety Report 6987393-6 (Version None)
Quarter: 2010Q3

REPORT INFORMATION
  Report Type: 
  Country: None (occurrence: None)
  Receive Date: 20100916
  Receipt Date: 20100913
  Transmission Date: 20110219
  Serious: Yes (Other)
  Sender: FDA-Public Use
  Company Number: US-ALLERGAN-1011082US

PATIENT
  Age: 74 Year
  Sex: Male
  Weight: 61.678 kg

DRUGS (2)
  1. BOTOX [Suspect]
     Indication: TORTICOLLIS
     Dosage: 100 UNITS, SINGLE
     Route: 030
     Dates: start: 20100714, end: 20100714
  2. BOTOX [Suspect]
     Dosage: UNK
     Dates: start: 20100325, end: 20100325

REACTIONS (1)
  - STEVENS-JOHNSON SYNDROME [None]
